FAERS Safety Report 9234105 (Version 2)
Quarter: 2013Q2

REPORT INFORMATION
  Report Type: Spontaneous
  Country: CO (occurrence: CO)
  Receive Date: 20130416
  Receipt Date: 20130422
  Transmission Date: 20140414
  Serious: Yes (Other)
  Sender: FDA-Public Use
  Company Number: CO-ROCHE-1214463

PATIENT
  Sex: Male
  Weight: 52 kg

DRUGS (8)
  1. LUCENTIS [Suspect]
     Indication: DIABETIC RETINAL OEDEMA
     Route: 050
     Dates: start: 20130125
  2. LUCENTIS [Suspect]
     Route: 050
     Dates: start: 20130225, end: 20130225
  3. INSULIN [Concomitant]
  4. ATORVASTATIN [Concomitant]
  5. GLIBENCLAMIDE [Concomitant]
  6. LANTUS [Concomitant]
  7. METFORMIN [Concomitant]
  8. LOSARTAN [Concomitant]

REACTIONS (3)
  - Eye haemorrhage [Unknown]
  - Blindness [Unknown]
  - Vitreous haemorrhage [Recovered/Resolved]
